FAERS Safety Report 6354764-0 (Version None)
Quarter: 2009Q3

REPORT INFORMATION
  Report Type: 
  Country: None (occurrence: None)
  Receive Date: 20090909
  Receipt Date: 20090826
  Transmission Date: 20100115
  Serious: Yes (Hospitalization)
  Sender: FDA-Public Use
  Company Number: 001616

PATIENT
  Sex: Female
  Weight: 37.7 kg

DRUGS (6)
  1. LACOSAMIDE [Suspect]
     Indication: MELAS SYNDROME
     Dosage: (ORAL)
     Route: 048
     Dates: start: 20090626, end: 20090628
  2. KEPPRA [Suspect]
     Indication: MELAS SYNDROME
     Dosage: (500 MG BID ORAL)
     Route: 048
     Dates: start: 20080101
  3. AMLODIPINE [Concomitant]
  4. PLAVIX [Concomitant]
  5. MAGNESIUM OXIDE [Concomitant]
  6. OTHER MINERAL SUPPLEMENTS [Concomitant]

REACTIONS (2)
  - AGGRESSION [None]
  - PSYCHOTIC DISORDER [None]
